FAERS Safety Report 12783339 (Version 2)
Quarter: 2016Q4

REPORT INFORMATION
  Report Type: Spontaneous
  Country: DE (occurrence: DE)
  Receive Date: 20160927
  Receipt Date: 20161214
  Transmission Date: 20170207
  Serious: Yes (Other)
  Sender: FDA-Public Use
  Company Number: DE-IPSEN BIOPHARMACEUTICALS, INC.-2016-07892

PATIENT
  Age: 48 Year
  Sex: Female
  Weight: 53 kg

DRUGS (3)
  1. VITAMIN D [Concomitant]
     Active Substance: CHOLECALCIFEROL
     Indication: VITAMIN D DEFICIENCY
  2. SOMATULINE AUTOGEL [Suspect]
     Active Substance: LANREOTIDE ACETATE
     Indication: OFF LABEL USE
     Dosage: 60 MG
     Route: 058
     Dates: start: 2013
  3. SOMATULINE AUTOGEL [Suspect]
     Active Substance: LANREOTIDE ACETATE
     Indication: PITUITARY TUMOUR BENIGN
     Dosage: 90 MG
     Route: 058
     Dates: start: 201211, end: 201302

REACTIONS (11)
  - Vitamin K deficiency [Recovering/Resolving]
  - Haemorrhage [Unknown]
  - Surgery [Unknown]
  - Magnesium deficiency [Recovering/Resolving]
  - Muscle spasms [Unknown]
  - Vitamin D deficiency [Recovering/Resolving]
  - Acromegaly [Unknown]
  - Off label use [Unknown]
  - Vitamin A deficiency [Recovering/Resolving]
  - Prothrombin time shortened [Unknown]
  - Inappropriate schedule of drug administration [Unknown]

NARRATIVE: CASE EVENT DATE: 2012
